FAERS Safety Report 10174476 (Version 2)
Quarter: 2014Q2

REPORT INFORMATION
  Report Type: Spontaneous
  Country: JP (occurrence: JP)
  Receive Date: 20140515
  Receipt Date: 20140602
  Transmission Date: 20141212
  Serious: Yes (Other)
  Sender: FDA-Public Use
  Company Number: JP-TEVA-481711ISR

PATIENT
  Age: 56 Year
  Sex: Male

DRUGS (1)
  1. CISPLATIN [Suspect]
     Indication: BASOSQUAMOUS CARCINOMA
     Dosage: 100 MG/M2, CYCLIC ON DAYS 1, 22 AND 43

REACTIONS (7)
  - Keratitis [Unknown]
  - Stomatitis [Unknown]
  - Dermatitis [Unknown]
  - Visual impairment [Unknown]
  - Haematotoxicity [Unknown]
  - Retinopathy [Unknown]
  - Optic nerve disorder [Unknown]
